FAERS Safety Report 8900610 (Version 1)
Quarter: 2012Q4

REPORT INFORMATION
  Report Type: 
  Country: CA (occurrence: CA)
  Receive Date: 20121109
  Receipt Date: 20121109
  Transmission Date: 20130627
  Serious: Yes (Hospitalization)
  Sender: FDA-Public Use
  Company Number: PHMT2006CA02176

PATIENT
  Sex: Female

DRUGS (7)
  1. SANDOSTATIN LAR [Suspect]
     Indication: CARCINOID TUMOUR OF THE PANCREAS
     Dosage: 60 mg, every 4 weeks
     Dates: start: 20051209
  2. SANDOSTATIN LAR [Suspect]
     Dates: start: 20060530
  3. DESIPRAMINE [Concomitant]
  4. GABAPENTIN [Concomitant]
  5. METADON [Concomitant]
  6. MORPHINE [Concomitant]
  7. PARIET [Concomitant]

REACTIONS (10)
  - Dyspnoea [Unknown]
  - Groin pain [Not Recovered/Not Resolved]
  - Hyperhidrosis [Unknown]
  - Pain [Unknown]
  - Night sweats [Unknown]
  - Abdominal distension [Unknown]
  - Vomiting [Unknown]
  - Nausea [Unknown]
  - Diarrhoea [Unknown]
  - Injection site pain [Unknown]
